FAERS Safety Report 10719167 (Version 1)
Quarter: 2015Q1

REPORT INFORMATION
  Report Type: Spontaneous
  Country: US (occurrence: US)
  Receive Date: 20150119
  Receipt Date: 20150119
  Transmission Date: 20150721
  Serious: No
  Sender: FDA-Public Use
  Company Number: US-009507513-1501USA005387

PATIENT
  Sex: Female
  Weight: 89.8 kg

DRUGS (1)
  1. NUVARING [Suspect]
     Active Substance: ETHINYL ESTRADIOL\ETONOGESTREL
     Indication: SEXUALLY ACTIVE
     Dosage: UNK, FREQUENCY-3 WEEKS IN 1 WEEK OUT
     Route: 067
     Dates: start: 20141215

REACTIONS (1)
  - Metrorrhagia [Unknown]
